FAERS Safety Report 4896175-0 (Version None)
Quarter: 2006Q1

REPORT INFORMATION
  Report Type: 
  Country: None (occurrence: None)
  Receive Date: 20060131
  Receipt Date: 20060119
  Transmission Date: 20060701
  Serious: Yes (Hospitalization)
  Sender: FDA-Public Use
  Company Number: IT-BOEHRINGER INGELHEIM PHARMACEUTICALS, INC.-2006-IT-00014IT

PATIENT
  Age: 71 Year
  Sex: Female

DRUGS (3)
  1. MIRAPEXIN [Suspect]
     Indication: PROGRESSIVE SUPRANUCLEAR PALSY
     Route: 048
  2. AKINETON [Suspect]
     Route: 048
  3. INSULIN [Concomitant]
     Indication: DIABETES MELLITUS INSULIN-DEPENDENT

REACTIONS (3)
  - NEUROLEPTIC MALIGNANT SYNDROME [None]
  - PLATELET COUNT DECREASED [None]
  - TRANSAMINASES INCREASED [None]
